FAERS Safety Report 9380958 (Version 1)
Quarter: 2013Q3

REPORT INFORMATION
  Report Type: Report from Study
  Country: MX (occurrence: MX)
  Receive Date: 20130703
  Receipt Date: 20130703
  Transmission Date: 20140515
  Serious: Yes (Hospitalization)
  Sender: FDA-Public Use
  Company Number: MX-ROCHE-1243637

PATIENT
  Age: 57 Year
  Sex: Female
  Weight: 42.8 kg

DRUGS (3)
  1. PEG-INTERFERON ALFA 2A [Suspect]
     Indication: HEPATITIS C
     Route: 065
  2. RIBAVIRIN [Suspect]
     Indication: HEPATITIS C
     Route: 065
  3. ALISPORIVIR [Suspect]
     Indication: HEPATITIS C
     Route: 065
     Dates: start: 20120105

REACTIONS (1)
  - Cholelithiasis [Recovered/Resolved]
